FAERS Safety Report 23718328 (Version 6)
Quarter: 2025Q3

REPORT INFORMATION
  Report Type: Spontaneous
  Country: IN (occurrence: IN)
  Receive Date: 20240408
  Receipt Date: 20250717
  Transmission Date: 20251021
  Serious: Yes (Hospitalization, Other)
  Sender: PFIZER
  Company Number: IN-PFIZER INC-PV202300072042

PATIENT
  Age: 41 Year
  Sex: Female

DRUGS (5)
  1. CRIZOTINIB [Suspect]
     Active Substance: CRIZOTINIB
     Indication: Lung adenocarcinoma
     Dosage: 250 MG, 2X/DAY
     Route: 048
     Dates: start: 20220921
  2. CRIZOTINIB [Suspect]
     Active Substance: CRIZOTINIB
     Route: 048
     Dates: end: 20250625
  3. PULMO [Concomitant]
  4. ZOLEDRONIC ACID [Concomitant]
     Active Substance: ZOLEDRONIC ACID
     Dates: start: 202302, end: 20230311
  5. XGEVA [Concomitant]
     Active Substance: DENOSUMAB
     Dosage: 120 MG, MONTHLY
     Route: 058
     Dates: start: 20230520, end: 202406

REACTIONS (19)
  - Dyspnoea [Unknown]
  - Pneumonitis [Unknown]
  - Carcinoembryonic antigen increased [Unknown]
  - Metastases to central nervous system [Unknown]
  - Malignant neoplasm progression [Unknown]
  - Pericardial effusion [Unknown]
  - Blood thyroid stimulating hormone increased [Not Recovered/Not Resolved]
  - Blood potassium increased [Unknown]
  - Glycosylated haemoglobin increased [Not Recovered/Not Resolved]
  - Chest X-ray abnormal [Unknown]
  - Prothrombin time prolonged [Unknown]
  - Blood triglycerides increased [Unknown]
  - Vitamin D increased [Unknown]
  - Oedema peripheral [Unknown]
  - Liver function test increased [Recovered/Resolved]
  - Gamma-glutamyltransferase increased [Unknown]
  - Fibrin D dimer increased [Recovered/Resolved]
  - Constipation [Unknown]
  - C-reactive protein increased [Unknown]

NARRATIVE: CASE EVENT DATE: 20220926
